FAERS Safety Report 9463329 (Version 2)
Quarter: 2013Q4

REPORT INFORMATION
  Report Type: Spontaneous
  Country: US (occurrence: US)
  Receive Date: 20130819
  Receipt Date: 20131008
  Transmission Date: 20140711
  Serious: Yes (Hospitalization)
  Sender: FDA-Public Use
  Company Number: US-BIOGENIDEC-2013BI075666

PATIENT
  Sex: Female

DRUGS (5)
  1. AVONEX [Suspect]
     Indication: MULTIPLE SCLEROSIS
     Route: 030
     Dates: start: 20130204
  2. TIZANIDINE HCL [Concomitant]
  3. METHOTREXATE [Concomitant]
  4. ALENDRONATE SODIUM [Concomitant]
  5. BACLOFEN [Concomitant]

REACTIONS (1)
  - Medical device change [Recovered/Resolved]
